FAERS Safety Report 21693578 (Version 2)
Quarter: 2023Q1

REPORT INFORMATION
  Report Type: Spontaneous
  Country: US (occurrence: US)
  Receive Date: 20221207
  Receipt Date: 20230310
  Transmission Date: 20230418
  Serious: No
  Sender: FDA-Public Use
  Company Number: US-GSK-US2022AMR178986

PATIENT
  Sex: Female
  Weight: 66.68 kg

DRUGS (2)
  1. TRELEGY ELLIPTA [Suspect]
     Active Substance: FLUTICASONE FUROATE\UMECLIDINIUM BROMIDE\VILANTEROL TRIFENATATE
     Indication: Asthma
     Dosage: 1 PUFF(S), QD, 200/62.5/25MCG
     Route: 055
     Dates: start: 20211011
  2. LEVALBUTEROL [Concomitant]
     Active Substance: LEVALBUTEROL
     Indication: Product used for unknown indication
     Dosage: 90 UG, PRN

REACTIONS (1)
  - Nocturia [Unknown]
